FAERS Safety Report 4610947-9 (Version None)
Quarter: 2005Q1

REPORT INFORMATION
  Report Type: 
  Country: None (occurrence: None)
  Receive Date: 20050317
  Receipt Date: 20050307
  Transmission Date: 20050727
  Serious: Yes (Hospitalization)
  Sender: FDA-Public Use
  Company Number: PHFR2005GB01123

PATIENT
  Age: 68 Year
  Sex: Male

DRUGS (6)
  1. DICLOFENAC [Suspect]
     Dosage: 50MG X 2
     Route: 048
     Dates: start: 20050214, end: 20050214
  2. PERINDOPRIL [Concomitant]
     Dosage: 20 MG, QD
     Route: 048
  3. ASPIRIN [Concomitant]
     Dosage: 75 MG, QD
     Route: 048
  4. BISOPROLOL FUMARATE [Concomitant]
     Dosage: 5 MG, QD
     Route: 048
  5. SIMVASTATIN [Concomitant]
     Dosage: 40 MG, QN
     Route: 048
  6. CO-CODAMOL [Concomitant]
     Dosage: 2 QDS PRN
     Route: 048

REACTIONS (6)
  - DYSPNOEA [None]
  - ERYTHEMA [None]
  - EYE SWELLING [None]
  - OCULAR HYPERAEMIA [None]
  - PRURITUS [None]
  - SWELLING FACE [None]
